FAERS Safety Report 21039571 (Version 3)
Quarter: 2022Q3

REPORT INFORMATION
  Report Type: Report from Study
  Country: PL (occurrence: PL)
  Receive Date: 20220704
  Receipt Date: 20220811
  Transmission Date: 20221026
  Serious: Yes (Death)
  Sender: FDA-Public Use
  Company Number: PL-Merck Healthcare KGaA-9314269

PATIENT
  Age: 68 Year
  Sex: Male

DRUGS (5)
  1. IRINOTECAN HYDROCHLORIDE [Suspect]
     Active Substance: IRINOTECAN HYDROCHLORIDE
     Indication: Colorectal cancer metastatic
     Dosage: UNK
     Route: 042
     Dates: start: 20181204, end: 20210808
  2. CETUXIMAB [Suspect]
     Active Substance: CETUXIMAB
     Indication: Colorectal cancer metastatic
     Dosage: 660 MG/M2
     Route: 042
     Dates: start: 20181204, end: 20181204
  3. CETUXIMAB [Suspect]
     Active Substance: CETUXIMAB
     Dosage: 619 MG/M2
     Route: 042
     Dates: start: 20210803, end: 20210803
  4. LEUCOVORIN [Suspect]
     Active Substance: LEUCOVORIN
     Indication: Colorectal cancer metastatic
     Dosage: UNK
     Route: 042
     Dates: start: 20181204, end: 20210808
  5. FLUOROURACIL [Suspect]
     Active Substance: FLUOROURACIL
     Indication: Colorectal cancer metastatic
     Dosage: UNK
     Route: 042
     Dates: start: 20181204, end: 20210808

REACTIONS (1)
  - Death [Fatal]

NARRATIVE: CASE EVENT DATE: 20210920
